FAERS Safety Report 12472493 (Version 1)
Quarter: 2016Q2

REPORT INFORMATION
  Report Type: Spontaneous
  Country: US (occurrence: US)
  Receive Date: 20160616
  Receipt Date: 20160616
  Transmission Date: 20160815
  Serious: Yes (Hospitalization)
  Sender: FDA-Public Use
  Company Number: US-ELI_LILLY_AND_COMPANY-US201606003376

PATIENT
  Age: 13 Year
  Sex: Female

DRUGS (11)
  1. 6-MP [Concomitant]
     Active Substance: MERCAPTOPURINE
     Indication: GASTROINTESTINAL DISORDER
     Dosage: 50 MG, QD
  2. PEPCID                             /00305201/ [Concomitant]
     Active Substance: ALUMINUM HYDROXIDE\MAGNESIUM CARBONATE
     Dosage: 20 MG, BID
  3. TERIPARATIDE [Suspect]
     Active Substance: TERIPARATIDE
     Dosage: 3 U, QD
     Route: 065
  4. HYDROCORTISONE. [Concomitant]
     Active Substance: HYDROCORTISONE
     Dosage: 10 MG, BID
  5. TERIPARATIDE [Suspect]
     Active Substance: TERIPARATIDE
     Indication: AUTOIMMUNE DISORDER
     Dosage: 10 UG, TID
     Route: 065
     Dates: start: 201201
  6. VITAMIN D [Concomitant]
     Active Substance: CHOLECALCIFEROL
     Dosage: 1000 U, QD
  7. PROCARDIA [Concomitant]
     Active Substance: NIFEDIPINE
     Dosage: 30 MG, QD
  8. FLORINEF ACETATE [Concomitant]
     Active Substance: FLUDROCORTISONE ACETATE
     Dosage: 0.1 MG, QD
  9. MAGNESIUM OXIDE. [Concomitant]
     Active Substance: MAGNESIUM OXIDE
     Dosage: 100 MG, QID
  10. POTASSIUM CHLORIDE. [Concomitant]
     Active Substance: POTASSIUM CHLORIDE
     Dosage: 40 MEQ, QID
  11. CALCIUM CARBONATE. [Concomitant]
     Active Substance: CALCIUM CARBONATE
     Indication: TETANY
     Dosage: 500 MG, TID

REACTIONS (7)
  - Off label use [Unknown]
  - Vomiting [Recovering/Resolving]
  - Overdose [Unknown]
  - Nausea [Recovering/Resolving]
  - Vomiting [Unknown]
  - Nausea [Unknown]
  - Overdose [Unknown]

NARRATIVE: CASE EVENT DATE: 201201
